FAERS Safety Report 9553289 (Version 1)
Quarter: 2013Q3

REPORT INFORMATION
  Report Type: Spontaneous
  Country: US (occurrence: None)
  Receive Date: 20130924
  Receipt Date: 20130924
  Transmission Date: 20140515
  Serious: Yes (Other)
  Sender: FDA-Public Use
  Company Number: None

PATIENT
  Sex: Female
  Weight: 54 kg

DRUGS (8)
  1. ROC RETINOL CORREXION DEEP WRINTKLE NIGHT CREAML [Suspect]
     Indication: SKIN WRINKLING
     Dosage: ABOUT PEA SIZE
     Route: 061
     Dates: start: 20130831, end: 20130902
  2. OXYCODONE [Concomitant]
  3. INHALER VENTOLIN HFA [Concomitant]
  4. KEPPRA XR [Concomitant]
  5. FOLIC ACID [Concomitant]
  6. B12 INJECTION [Concomitant]
  7. PLAVIX [Concomitant]
  8. TOPAMAX [Concomitant]

REACTIONS (3)
  - Burning sensation [None]
  - Skin exfoliation [None]
  - Chemical injury [None]
